FAERS Safety Report 17072476 (Version 1)
Quarter: 2019Q4

REPORT INFORMATION
  Report Type: Report from Study
  Country: JP (occurrence: JP)
  Receive Date: 20191125
  Receipt Date: 20191125
  Transmission Date: 20200122
  Serious: Yes (Other)
  Sender: FDA-Public Use
  Company Number: NVSJ2019JP002186

PATIENT
  Age: 18 Year
  Sex: Male
  Weight: 41.9 kg

DRUGS (19)
  1. ILARIS [Suspect]
     Active Substance: CANAKINUMAB
     Dosage: 172.5 MG
     Route: 058
     Dates: start: 20181129
  2. ILARIS [Suspect]
     Active Substance: CANAKINUMAB
     Dosage: 172.5 MG
     Route: 058
     Dates: start: 20190418
  3. METHOTREXATE. [Concomitant]
     Active Substance: METHOTREXATE
     Indication: STILL^S DISEASE
     Dosage: 14 MG, QW
     Route: 048
     Dates: start: 20180802
  4. ILARIS [Suspect]
     Active Substance: CANAKINUMAB
     Dosage: 172.5 MG
     Route: 058
     Dates: start: 20181227
  5. ILARIS [Suspect]
     Active Substance: CANAKINUMAB
     Dosage: 172.5 MG
     Route: 058
     Dates: start: 20190711
  6. ILARIS [Suspect]
     Active Substance: CANAKINUMAB
     Dosage: 172.5 MG
     Route: 058
     Dates: start: 20190912
  7. ILARIS [Suspect]
     Active Substance: CANAKINUMAB
     Dosage: 172.5 MG
     Route: 058
     Dates: start: 20190220
  8. ILARIS [Suspect]
     Active Substance: CANAKINUMAB
     Dosage: 172.5 MG
     Route: 058
     Dates: start: 20190117
  9. ILARIS [Suspect]
     Active Substance: CANAKINUMAB
     Dosage: 172.5 MG
     Route: 058
     Dates: start: 20190319
  10. ILARIS [Suspect]
     Active Substance: CANAKINUMAB
     Dosage: 172.5 MG
     Route: 058
     Dates: start: 20190613
  11. ILARIS [Suspect]
     Active Substance: CANAKINUMAB
     Dosage: 172.5 MG
     Route: 058
     Dates: start: 20190808
  12. ILARIS [Suspect]
     Active Substance: CANAKINUMAB
     Dosage: 172.5 MG
     Route: 058
     Dates: start: 20191010
  13. PREDNISOLONE. [Concomitant]
     Active Substance: PREDNISOLONE
     Indication: STILL^S DISEASE
     Dosage: 6 MG
     Route: 048
     Dates: start: 20180802
  14. ILARIS [Suspect]
     Active Substance: CANAKINUMAB
     Indication: DRUG DOSE TITRATION NOT PERFORMED
     Dosage: 172.5 MG
     Route: 058
     Dates: start: 20180830
  15. ILARIS [Suspect]
     Active Substance: CANAKINUMAB
     Dosage: 172.5 MG
     Route: 058
     Dates: start: 20181025
  16. ILARIS [Suspect]
     Active Substance: CANAKINUMAB
     Indication: STILL^S DISEASE
     Dosage: 172.5 MG
     Route: 058
     Dates: start: 20180802
  17. ILARIS [Suspect]
     Active Substance: CANAKINUMAB
     Dosage: 172.5 MG
     Route: 058
     Dates: start: 20180927
  18. ILARIS [Suspect]
     Active Substance: CANAKINUMAB
     Dosage: 172.5 MG
     Route: 058
     Dates: start: 20190516
  19. TACROLIMUS MONOHYDRATE [Suspect]
     Active Substance: TACROLIMUS
     Indication: STILL^S DISEASE
     Dosage: 3 MG
     Route: 048
     Dates: start: 20180802

REACTIONS (1)
  - Subcutaneous abscess [Unknown]

NARRATIVE: CASE EVENT DATE: 20181011
